FAERS Safety Report 6603940-8 (Version None)
Quarter: 2010Q1

REPORT INFORMATION
  Report Type: 
  Country: None (occurrence: None)
  Receive Date: 20100226
  Receipt Date: 20090324
  Transmission Date: 20100710
  Serious: No
  Sender: FDA-Public Use
  Company Number: A0775048A

PATIENT
  Age: 52 Year
  Sex: Female

DRUGS (2)
  1. LAMOTRIGINE [Suspect]
     Indication: BIPOLAR DISORDER
     Dosage: 150MG TWICE PER DAY
     Route: 048
     Dates: start: 20080901, end: 20081201
  2. XANAX [Concomitant]

REACTIONS (4)
  - DRUG INEFFECTIVE [None]
  - FORMICATION [None]
  - IRRITABILITY [None]
  - THROAT TIGHTNESS [None]
